FAERS Safety Report 5323908-1 (Version None)
Quarter: 2007Q1

REPORT INFORMATION
  Report Type: 
  Country: None (occurrence: None)
  Receive Date: 20070327
  Receipt Date: 20060317
  Transmission Date: 20070707
  Serious: Yes (Hospitalization)
  Sender: FDA-Public Use
  Company Number: 2004-05-1094

PATIENT
  Age: 66 Year
  Sex: Male

DRUGS (3)
  1. REBETOL [Suspect]
     Indication: HEPATITIS C
     Dosage: 600-400*MG ORAL
     Route: 048
     Dates: start: 20020826, end: 20030115
  2. INTRON A [Suspect]
     Indication: HEPATITIS C
     Dosage: 6 MIU*6-3X/WK INTRAMUSCU
     Route: 031
     Dates: start: 20020826, end: 20030227
  3. TEGRETOL-XR [Concomitant]

REACTIONS (4)
  - ANAEMIA [None]
  - MONOCYTE COUNT INCREASED [None]
  - NASOPHARYNGITIS [None]
  - WHITE BLOOD CELL COUNT DECREASED [None]
